FAERS Safety Report 6741865-8 (Version None)
Quarter: 2010Q2

REPORT INFORMATION
  Report Type: 
  Country: None (occurrence: None)
  Receive Date: 20100526
  Receipt Date: 20100519
  Transmission Date: 20101027
  Serious: Yes (Hospitalization)
  Sender: FDA-Public Use
  Company Number: A0787085A

PATIENT
  Age: 68 Year
  Sex: Male

DRUGS (1)
  1. AVANDIA [Suspect]
     Dates: start: 20000101, end: 20100507

REACTIONS (8)
  - ASTHENIA [None]
  - CEREBROVASCULAR ACCIDENT [None]
  - EYE DISORDER [None]
  - EYE PAIN [None]
  - FATIGUE [None]
  - HEADACHE [None]
  - HEMIPARESIS [None]
  - LAGOPHTHALMOS [None]
